FAERS Safety Report 7409209-6 (Version None)
Quarter: 2011Q2

REPORT INFORMATION
  Report Type: 
  Country: None (occurrence: None)
  Receive Date: 20110412
  Receipt Date: 20110330
  Transmission Date: 20111010
  Serious: Yes (Hospitalization)
  Sender: FDA-Public Use
  Company Number: US-ELI_LILLY_AND_COMPANY-US201006007853

PATIENT
  Sex: Female

DRUGS (9)
  1. FORTEO [Suspect]
     Dosage: 20 UG, QD
     Dates: start: 20110328
  2. HYDROCODONE [Concomitant]
  3. NEXIUM [Concomitant]
     Dosage: 40 MG, DAILY (1/D)
  4. ALLEGRA [Concomitant]
     Indication: HYPERSENSITIVITY
     Dosage: 180 MG, AS NEEDED
  5. FORTEO [Suspect]
     Indication: OSTEOPOROSIS
     Dosage: 20 UG, DAILY (1/D)
     Dates: start: 20100603, end: 20100701
  6. LIDODERM [Concomitant]
     Dosage: 5 %, DAILY (1/D)
  7. ADVAIR DISKUS 100/50 [Concomitant]
     Indication: ASTHMA
     Dosage: UNK, AS NEEDED
  8. MECLIZINE [Concomitant]
     Dosage: 25 MG, UNK
  9. SYNTHROID [Concomitant]
     Dosage: 1 MG, UNK

REACTIONS (23)
  - VIRAL INFECTION [None]
  - MYALGIA [None]
  - VISUAL IMPAIRMENT [None]
  - DEAFNESS [None]
  - ABASIA [None]
  - JOINT SWELLING [None]
  - FALL [None]
  - OEDEMA PERIPHERAL [None]
  - CONSTIPATION [None]
  - MUSCULAR WEAKNESS [None]
  - BALANCE DISORDER [None]
  - DIZZINESS [None]
  - NAUSEA [None]
  - ASTHENIA [None]
  - CATARACT [None]
  - COMPRESSION FRACTURE [None]
  - ACUTE STRESS DISORDER [None]
  - BACK PAIN [None]
  - PAIN [None]
  - VISION BLURRED [None]
  - MALAISE [None]
  - EYE DISORDER [None]
  - HERPES ZOSTER [None]
